FAERS Safety Report 6601939-9 (Version None)
Quarter: 2010Q1

REPORT INFORMATION
  Report Type: 
  Country: None (occurrence: None)
  Receive Date: 20100218
  Receipt Date: 20100205
  Transmission Date: 20100710
  Serious: Yes (Congenital Anomaly, Other)
  Sender: FDA-Public Use
  Company Number: 006392

PATIENT

DRUGS (3)
  1. KEPPRA [Suspect]
     Dosage: TRANSPLACENTAL
     Route: 064
  2. TYLENOL /00020001/ (NOT SPECIFIED) [Suspect]
     Indication: HEADACHE
  3. TYLENOL (CAPLET) [Concomitant]

REACTIONS (2)
  - ANENCEPHALY [None]
  - MATERNAL DRUGS AFFECTING FOETUS [None]
